FAERS Safety Report 6479550-2 (Version None)
Quarter: 2009Q4

REPORT INFORMATION
  Report Type: 
  Country: None (occurrence: None)
  Receive Date: 20091207
  Receipt Date: 20091207
  Transmission Date: 20100525
  Serious: Yes (Life-Threatening, Hospitalization, Disabling, Other)
  Sender: FDA-Public Use
  Company Number: None

PATIENT
  Sex: Male
  Weight: 122.4712 kg

DRUGS (1)
  1. LORAZEPAM [Suspect]
     Indication: INSOMNIA
     Dosage: 6 MG DAILY PO
     Route: 048
     Dates: start: 20010615, end: 20080506

REACTIONS (11)
  - ACUTE HEPATIC FAILURE [None]
  - ALCOHOL ABUSE [None]
  - COMA [None]
  - CONFUSIONAL STATE [None]
  - EMOTIONAL DISORDER [None]
  - FAMILY STRESS [None]
  - HIGH RISK SEXUAL BEHAVIOUR [None]
  - HIV TEST POSITIVE [None]
  - IMPAIRED WORK ABILITY [None]
  - LOSS OF CONSCIOUSNESS [None]
  - PERSONALITY CHANGE [None]
